FAERS Safety Report 7945821-3 (Version None)
Quarter: 2011Q4

REPORT INFORMATION
  Report Type: 
  Country: None (occurrence: None)
  Receive Date: 20111129
  Receipt Date: 20111115
  Transmission Date: 20120403
  Serious: Yes (Other)
  Sender: FDA-Public Use
  Company Number: PHHY2011CO103274

PATIENT
  Sex: Female
  Weight: 0.18 kg

DRUGS (1)
  1. SANDOSTATIN LAR [Suspect]
     Indication: VIPOMA
     Dosage: MATERNAL DOSE: 30 MGS EACH MONTH
     Route: 064

REACTIONS (2)
  - LOW BIRTH WEIGHT BABY [None]
  - FOETAL EXPOSURE DURING PREGNANCY [None]
